FAERS Safety Report 18746095 (Version 1)
Quarter: 2021Q1

REPORT INFORMATION
  Report Type: Spontaneous
  Country: US (occurrence: US)
  Receive Date: 20210115
  Receipt Date: 20210115
  Transmission Date: 20210419
  Serious: Yes (Life-Threatening, Hospitalization)
  Sender: FDA-Public Use
  Company Number: US-MYLANLABS-2021M1002427

PATIENT
  Age: 14 Year
  Sex: Male

DRUGS (4)
  1. DOBUTAMINE [Suspect]
     Active Substance: DOBUTAMINE HYDROCHLORIDE
     Indication: VENTRICULAR FIBRILLATION
     Dosage: A DOBUTAMINE INFUSION...
  2. AMIODARONE [Suspect]
     Active Substance: AMIODARONE
     Indication: VENTRICULAR FIBRILLATION
     Dosage: 300 MG OF AMIODARONE BOLUSES...
  3. VASOPRESSIN. [Suspect]
     Active Substance: VASOPRESSIN
     Indication: VENTRICULAR FIBRILLATION
     Dosage: HE WAS ALSO STARTED ON...
  4. EPINEPHRINE. [Suspect]
     Active Substance: EPINEPHRINE
     Indication: VENTRICULAR FIBRILLATION
     Dosage: 1 MG OF EPINEPHRINE BOLUSES....

REACTIONS (1)
  - Drug ineffective [Unknown]
